APPROVED DRUG PRODUCT: SCANLUX-300
Active Ingredient: IOPAMIDOL
Strength: 61%
Dosage Form/Route: INJECTABLE;INJECTION
Application: A090394 | Product #001
Applicant: SANOCHEMIA CORP USA
Approved: Jun 18, 2010 | RLD: No | RS: No | Type: DISCN